FAERS Safety Report 21445611 (Version 5)
Quarter: 2022Q4

REPORT INFORMATION
  Report Type: Spontaneous
  Country: US (occurrence: US)
  Receive Date: 20221012
  Receipt Date: 20221228
  Transmission Date: 20230113
  Serious: No
  Sender: FDA-Public Use
  Company Number: US-PFIZER INC-202201169440

PATIENT
  Age: 12 Year
  Sex: Male
  Weight: 28.395 kg

DRUGS (1)
  1. GENOTROPIN [Suspect]
     Active Substance: SOMATROPIN
     Indication: Growth disorder
     Dosage: 1.5 MG, DAILY (INJECT IT EVERY NIGHT IN HIS THIGHS OR THREE FINGERS FROM BELLY BUTTON OR HIS BEHIND)

REACTIONS (8)
  - Device power source issue [Recovered/Resolved]
  - Device information output issue [Not Recovered/Not Resolved]
  - Incorrect dose administered by device [Not Recovered/Not Resolved]
  - Drug dose omission by device [Recovered/Resolved]
  - Product prescribing error [Unknown]
  - COVID-19 [Recovered/Resolved]
  - Nasal congestion [Recovered/Resolved]
  - Illness [Recovered/Resolved]

NARRATIVE: CASE EVENT DATE: 20220101
